FAERS Safety Report 16120801 (Version 2)
Quarter: 2019Q2

REPORT INFORMATION
  Report Type: Report from Study
  Country: CA (occurrence: CA)
  Receive Date: 20190327
  Receipt Date: 20190501
  Transmission Date: 20190711
  Serious: Yes (Other)
  Sender: FDA-Public Use
  Company Number: CA-ROCHE-2288151

PATIENT
  Age: 63 Year
  Sex: Female
  Weight: 83.2 kg

DRUGS (6)
  1. RITUXIMAB. [Suspect]
     Active Substance: RITUXIMAB
     Indication: B-CELL LYMPHOMA
     Route: 042
     Dates: start: 20170228, end: 20170228
  2. CC-122 [Suspect]
     Active Substance: AVADOMIDE
     Dosage: 28 TH CYCLE?ROUTE SELECTED AS PER PROTOCOL
     Route: 048
     Dates: start: 20190319
  3. FILGRASTINE [Concomitant]
     Active Substance: FILGRASTIM
     Indication: NEUTROPENIA
     Dosage: 300MCG
     Route: 058
     Dates: start: 20180423
  4. LEVOTHYROXINE. [Concomitant]
     Active Substance: LEVOTHYROXINE
     Indication: THYROIDITIS
     Dosage: 75MCG
     Route: 048
     Dates: start: 20180221
  5. CC-122 [Suspect]
     Active Substance: AVADOMIDE
     Dosage: 29 TH CYCLE?ROUTE SELECTED AS PER PROTOCOL
     Route: 048
     Dates: start: 20190224
  6. CC-122 [Suspect]
     Active Substance: AVADOMIDE
     Indication: B-CELL LYMPHOMA
     Dosage: 1ST CYCLE?ROUTE SELECTED AS PER PROTOCOL
     Route: 048
     Dates: start: 20170221, end: 20170318

REACTIONS (1)
  - Skin neoplasm excision [Recovered/Resolved]

NARRATIVE: CASE EVENT DATE: 201810
